FAERS Safety Report 5676022-X (Version None)
Quarter: 2008Q1

REPORT INFORMATION
  Report Type: 
  Country: None (occurrence: None)
  Receive Date: 20080318
  Receipt Date: 20080306
  Transmission Date: 20080703
  Serious: Yes (Other)
  Sender: FDA-Public Use
  Company Number: PAR_02134_2008

PATIENT
  Sex: Female
  Weight: 56.6996 kg

DRUGS (4)
  1. DOXEPIN HYDROCHLORIDE [Suspect]
     Indication: DEPRESSION
     Dosage: (75 MG QD IN THE EVENING ORAL
     Route: 048
     Dates: start: 20070101
  2. DOXEPIN HYDROCHLORIDE [Suspect]
     Indication: SLEEP DISORDER
     Dosage: (75 MG QD IN THE EVENING ORAL
     Route: 048
     Dates: start: 20070101
  3. PROZAC [Concomitant]
  4. NEURONTIN [Concomitant]

REACTIONS (3)
  - CONVULSION [None]
  - NECK INJURY [None]
  - ROAD TRAFFIC ACCIDENT [None]
